FAERS Safety Report 8955853 (Version 1)
Quarter: 2012Q4

REPORT INFORMATION
  Report Type: 
  Country: US (occurrence: US)
  Receive Date: 20121210
  Receipt Date: 20121210
  Transmission Date: 20130627
  Serious: Yes (Other)
  Sender: FDA-Public Use
  Company Number: US-MERCK-1212USA002569

PATIENT
  Sex: Female

DRUGS (4)
  1. PEGINTRON [Suspect]
     Indication: HEPATITIS C
     Dosage: Redipen
     Dates: start: 20120306
  2. PEGINTRON [Suspect]
     Dosage: UNK
  3. VICTRELIS [Suspect]
     Indication: HEPATITIS C
     Dosage: UNK
     Dates: start: 20120403, end: 20121113
  4. RIBAVIRIN [Suspect]
     Indication: HEPATITIS C
     Dosage: UNK
     Dates: start: 20120306

REACTIONS (21)
  - Musculoskeletal disorder [Unknown]
  - Mood swings [Unknown]
  - Dysgeusia [Recovering/Resolving]
  - Vertigo [Unknown]
  - Dizziness [Unknown]
  - Headache [Unknown]
  - Migraine [Unknown]
  - Hypertension [Unknown]
  - Anxiety [Unknown]
  - Alopecia [Unknown]
  - Haemoglobin decreased [Recovering/Resolving]
  - Chills [Unknown]
  - Pyrexia [Unknown]
  - Weight decreased [Unknown]
  - Decreased appetite [Recovering/Resolving]
  - Hypothyroidism [Unknown]
  - Vomiting [Unknown]
  - Vision blurred [Unknown]
  - Visual impairment [Unknown]
  - Panic attack [Unknown]
  - Memory impairment [Unknown]
